FAERS Safety Report 10499246 (Version 1)
Quarter: 2014Q4

REPORT INFORMATION
  Report Type: Spontaneous
  Country: US (occurrence: US)
  Receive Date: 20141006
  Receipt Date: 20141006
  Transmission Date: 20150528
  Serious: No
  Sender: FDA-Public Use
  Company Number: US-AMGEN INC.-USASP2014032466

PATIENT
  Age: 63 Year
  Sex: Female

DRUGS (1)
  1. XGEVA [Suspect]
     Active Substance: DENOSUMAB
     Indication: PRODUCT USED FOR UNKNOWN INDICATION
     Dosage: UNK
     Route: 065
     Dates: start: 201308

REACTIONS (7)
  - Lip pain [Unknown]
  - Headache [Unknown]
  - Hypoaesthesia oral [Unknown]
  - Paraesthesia [Unknown]
  - Lip swelling [Unknown]
  - Heart rate abnormal [Unknown]
  - Oral pain [Unknown]

NARRATIVE: CASE EVENT DATE: 201403
